FAERS Safety Report 6692530-7 (Version None)
Quarter: 2010Q2

REPORT INFORMATION
  Report Type: 
  Country: None (occurrence: None)
  Receive Date: 20100422
  Receipt Date: 20100419
  Transmission Date: 20101027
  Serious: Yes (Hospitalization)
  Sender: FDA-Public Use
  Company Number: Z0003874A

PATIENT
  Sex: Male
  Weight: 63 kg

DRUGS (8)
  1. PAZOPANIB [Suspect]
     Indication: NON-SMALL CELL LUNG CANCER
     Dosage: 600MG PER DAY
     Route: 048
     Dates: start: 20100306, end: 20100401
  2. PEMETREXED [Suspect]
     Indication: NON-SMALL CELL LUNG CANCER
     Dosage: 500MGM2 CYCLIC
     Route: 042
     Dates: start: 20100305
  3. ENALAPRIL MALEATE [Concomitant]
     Indication: HYPERTENSION
     Dosage: 10MG PER DAY
     Route: 048
     Dates: start: 20040101, end: 20100412
  4. SIMVASTATINA [Concomitant]
     Dosage: 20MG PER DAY
     Route: 048
     Dates: start: 20010101, end: 20100412
  5. PULMICORT [Concomitant]
     Indication: CHRONIC OBSTRUCTIVE PULMONARY DISEASE
     Dosage: 4PUFF TWICE PER DAY
     Route: 055
     Dates: start: 20050101, end: 20100412
  6. SPIRIVA [Concomitant]
     Indication: CHRONIC OBSTRUCTIVE PULMONARY DISEASE
     Dosage: 2PUFF TWICE PER DAY
     Route: 055
     Dates: start: 20050101, end: 20100412
  7. OMEPRAZOLE [Concomitant]
     Indication: PROPHYLAXIS
     Dosage: 20MG PER DAY
     Route: 048
     Dates: start: 20100201, end: 20100412
  8. RED BLOOD CELLS [Concomitant]
     Dosage: 2UNIT PER DAY
     Route: 042
     Dates: start: 20100408, end: 20100408

REACTIONS (1)
  - RENAL FAILURE [None]
